FAERS Safety Report 7641811-9 (Version None)
Quarter: 2011Q3

REPORT INFORMATION
  Report Type: 
  Country: None (occurrence: None)
  Receive Date: 20110722
  Receipt Date: 20110718
  Transmission Date: 20111222
  Serious: Yes (Death, Life-Threatening, Hospitalization, Other)
  Sender: FDA-Public Use
  Company Number: 2008-178904-NL

PATIENT
  Age: 59 Year
  Sex: Male

DRUGS (8)
  1. AMITRIPTYLINE HYDROCHLORIDE [Suspect]
     Indication: DEPRESSION
     Dosage: 125 MG; QD; PO
     Route: 048
  2. PARACET [Concomitant]
  3. ALPRAZOLAM [Suspect]
     Indication: ANXIETY
     Dosage: 4 MG; QD
  4. FENTANYL [Concomitant]
  5. REMERON [Suspect]
     Indication: DEPRESSION
     Dosage: 60 MG; QD; PO
     Route: 048
  6. ATENOLOL [Suspect]
     Indication: PRODUCT USED FOR UNKNOWN INDICATION
  7. ISOSORBIDE MONONITRATE [Suspect]
     Indication: PRODUCT USED FOR UNKNOWN INDICATION
  8. CENTYL (VENDROFLUMETHIAZIDE) [Suspect]
     Indication: PRODUCT USED FOR UNKNOWN INDICATION
     Dosage: PO
     Route: 048

REACTIONS (13)
  - MYALGIA [None]
  - DISSEMINATED INTRAVASCULAR COAGULATION [None]
  - HEADACHE [None]
  - SEROTONIN SYNDROME [None]
  - HEPATIC STEATOSIS [None]
  - METABOLIC ACIDOSIS [None]
  - DRUG INTERACTION [None]
  - MULTI-ORGAN FAILURE [None]
  - FATIGUE [None]
  - HEPATIC FAILURE [None]
  - POISONING [None]
  - MULTIPLE DRUG OVERDOSE [None]
  - CEREBELLAR ATROPHY [None]
